FAERS Safety Report 6589829-1 (Version None)
Quarter: 2010Q1

REPORT INFORMATION
  Report Type: 
  Country: None (occurrence: None)
  Receive Date: 20100212
  Receipt Date: 20100203
  Transmission Date: 20100710
  Serious: Yes (Hospitalization)
  Sender: FDA-Public Use
  Company Number: AMAG201000054

PATIENT
  Age: 75 Year
  Sex: Male
  Weight: 90 kg

DRUGS (24)
  1. FERAHEME [Suspect]
     Indication: IRON DEFICIENCY ANAEMIA
     Dosage: 510 MG, SINGLE, INTRAVENOUS, 510 MG, SINGLE, INTRAVENOUS, 30 MG, SINGLE, INTRAVENOUS
     Route: 042
     Dates: start: 20091223, end: 20091223
  2. FERAHEME [Suspect]
     Indication: RENAL FAILURE CHRONIC
     Dosage: 510 MG, SINGLE, INTRAVENOUS, 510 MG, SINGLE, INTRAVENOUS, 30 MG, SINGLE, INTRAVENOUS
     Route: 042
     Dates: start: 20091223, end: 20091223
  3. FERAHEME [Suspect]
     Indication: IRON DEFICIENCY ANAEMIA
     Dosage: 510 MG, SINGLE, INTRAVENOUS, 510 MG, SINGLE, INTRAVENOUS, 30 MG, SINGLE, INTRAVENOUS
     Route: 042
     Dates: start: 20100101, end: 20100101
  4. FERAHEME [Suspect]
     Indication: RENAL FAILURE CHRONIC
     Dosage: 510 MG, SINGLE, INTRAVENOUS, 510 MG, SINGLE, INTRAVENOUS, 30 MG, SINGLE, INTRAVENOUS
     Route: 042
     Dates: start: 20100101, end: 20100101
  5. FERAHEME [Suspect]
     Indication: IRON DEFICIENCY ANAEMIA
     Dosage: 510 MG, SINGLE, INTRAVENOUS, 510 MG, SINGLE, INTRAVENOUS, 30 MG, SINGLE, INTRAVENOUS
     Route: 042
     Dates: start: 20100118, end: 20100118
  6. FERAHEME [Suspect]
     Indication: RENAL FAILURE CHRONIC
     Dosage: 510 MG, SINGLE, INTRAVENOUS, 510 MG, SINGLE, INTRAVENOUS, 30 MG, SINGLE, INTRAVENOUS
     Route: 042
     Dates: start: 20100118, end: 20100118
  7. EPOGEN [Concomitant]
  8. ASPIRIN [Concomitant]
  9. NITROQUICK (GLYCERYL TRINITRATE) [Concomitant]
  10. AMIODARONE HCL [Concomitant]
  11. CARDURA [Concomitant]
  12. LIPITOR [Concomitant]
  13. PROCARDIA [Concomitant]
  14. ZETIA [Concomitant]
  15. PLAVIX [Concomitant]
  16. COUMADIN (COUMARIN) [Concomitant]
  17. LEVEMIR [Concomitant]
  18. NOVOLOG [Concomitant]
  19. SYNTHROID [Concomitant]
  20. PHOSLO [Concomitant]
  21. PREVACID [Concomitant]
  22. REGLAN [Concomitant]
  23. LEXAPRO [Concomitant]
  24. DAILYVITE [Concomitant]

REACTIONS (15)
  - BLOOD CALCIUM DECREASED [None]
  - BLOOD CREATINE INCREASED [None]
  - BLOOD POTASSIUM INCREASED [None]
  - BLOOD UREA INCREASED [None]
  - CARDIAC STRESS TEST ABNORMAL [None]
  - ELECTROCARDIOGRAM POOR R-WAVE PROGRESSION [None]
  - ELECTROCARDIOGRAM PR PROLONGATION [None]
  - ELECTROCARDIOGRAM QT PROLONGED [None]
  - GRUNTING [None]
  - HAEMOGLOBIN DECREASED [None]
  - HYPOTENSION [None]
  - INTERNATIONAL NORMALISED RATIO INCREASED [None]
  - QRS AXIS ABNORMAL [None]
  - SINUS BRADYCARDIA [None]
  - SYNCOPE [None]
